FAERS Safety Report 19919337 (Version 1)
Quarter: 2021Q4

REPORT INFORMATION
  Report Type: Report from Study
  Country: BR (occurrence: BR)
  Receive Date: 20211004
  Receipt Date: 20211004
  Transmission Date: 20220304
  Serious: Yes (Hospitalization, Other)
  Sender: FDA-Public Use
  Company Number: BR-NOVARTISPH-NVSC2020BR161532

PATIENT
  Age: 61 Year
  Sex: Female

DRUGS (11)
  1. COSENTYX [Suspect]
     Active Substance: SECUKINUMAB
     Indication: Psoriasis
     Dosage: 300 MG, (FOR 5 WEEKS STRAIGHT)
     Route: 065
     Dates: start: 20200123
  2. COSENTYX [Suspect]
     Active Substance: SECUKINUMAB
     Indication: Psoriatic arthropathy
     Dosage: 300 MG, QMO
     Route: 065
     Dates: start: 20200123
  3. COSENTYX [Suspect]
     Active Substance: SECUKINUMAB
     Dosage: UNK, UNKNOWN
     Route: 065
     Dates: start: 20210806
  4. CYCLOSPORINE [Suspect]
     Active Substance: CYCLOSPORINE
     Indication: Product used for unknown indication
     Dosage: UNK
     Route: 065
     Dates: start: 20190717
  5. ANASTROZOLE [Suspect]
     Active Substance: ANASTROZOLE
     Indication: Product used for unknown indication
     Dosage: UNK
     Route: 065
  6. LOSARTAN [Suspect]
     Active Substance: LOSARTAN
     Indication: Product used for unknown indication
     Dosage: 50 MG, QD
     Route: 065
  7. METHOTREXATE [Suspect]
     Active Substance: METHOTREXATE
     Indication: Product used for unknown indication
     Dosage: UNK
     Route: 065
  8. ASPIRIN [Suspect]
     Active Substance: ASPIRIN
     Indication: Ischaemia
     Dosage: 100 MG, QD
     Route: 065
  9. ACITRETIN [Concomitant]
     Active Substance: ACITRETIN
     Indication: Product used for unknown indication
     Dosage: UNK
     Route: 065
  10. CALCIUM [Concomitant]
     Active Substance: CALCIUM
     Indication: Product used for unknown indication
     Dosage: UNK
     Route: 065
  11. SINVANE [Concomitant]
     Indication: Product used for unknown indication
     Dosage: 40 MG, QD
     Route: 065

REACTIONS (31)
  - Pancreatitis acute [Recovered/Resolved]
  - Abdominal pain upper [Unknown]
  - Drug-induced liver injury [Unknown]
  - Breast cancer [Unknown]
  - Cerebrovascular accident [Unknown]
  - Psoriatic arthropathy [Unknown]
  - Malaise [Unknown]
  - Pyrexia [Unknown]
  - Memory impairment [Unknown]
  - Burning sensation [Recovered/Resolved]
  - Blood pressure increased [Not Recovered/Not Resolved]
  - Depression [Not Recovered/Not Resolved]
  - Spinal disorder [Unknown]
  - Tooth fracture [Unknown]
  - Tooth infection [Unknown]
  - Swelling [Unknown]
  - Ischaemia [Unknown]
  - Fall [Unknown]
  - Head injury [Unknown]
  - Oedema [Unknown]
  - Back disorder [Unknown]
  - Fibromyalgia [Unknown]
  - Scar [Unknown]
  - Toothache [Unknown]
  - Drug hypersensitivity [Unknown]
  - Blister [Unknown]
  - Nausea [Unknown]
  - Vomiting [Unknown]
  - Decreased immune responsiveness [Unknown]
  - Psoriasis [Unknown]
  - Drug ineffective [Unknown]

NARRATIVE: CASE EVENT DATE: 20180601
